FAERS Safety Report 19034526 (Version 3)
Quarter: 2021Q2

REPORT INFORMATION
  Report Type: Spontaneous
  Country: FR (occurrence: FR)
  Receive Date: 20210319
  Receipt Date: 20210405
  Transmission Date: 20210717
  Serious: Yes (Other)
  Sender: FDA-Public Use
  Company Number: FR-ALXN-A202103503

PATIENT
  Age: 12 Year
  Sex: Male
  Weight: 42.9 kg

DRUGS (7)
  1. ORAVIL                             /00318501/ [Concomitant]
     Indication: PROPHYLAXIS
     Dosage: 100000 IU, EVERY 3 MONTHS
     Route: 065
     Dates: start: 2019
  2. STRENSIQ [Suspect]
     Active Substance: ASFOTASE ALFA
     Dosage: 280 MG, QW(280.0MG/WEEKLY ADMINISTERED AS 5X40MG/ML + 1X80MG/0.8ML PER WEEK)
     Route: 065
  3. STRENSIQ [Suspect]
     Active Substance: ASFOTASE ALFA
     Indication: HYPOPHOSPHATASIA
     Dosage: 0.86 MG/KG , SIX TIMES/WEEK
     Route: 058
     Dates: start: 201903
  4. VENTOLINE                          /00139501/ [Concomitant]
     Active Substance: ALBUTEROL
     Indication: ASTHMA
     Dosage: UNK
     Route: 065
  5. FLIXOTIDE [Concomitant]
     Active Substance: FLUTICASONE PROPIONATE
     Indication: ASTHMA
     Dosage: UNK
     Route: 065
  6. STRENSIQ [Suspect]
     Active Substance: ASFOTASE ALFA
     Dosage: 5X40 MG/ML, UNK
     Route: 065
     Dates: start: 20210315
  7. STRENSIQ [Suspect]
     Active Substance: ASFOTASE ALFA
     Dosage: 80MG/0.8ML
     Route: 065
     Dates: start: 20210316

REACTIONS (12)
  - Dyspnoea [Recovered/Resolved]
  - Dizziness [Recovered/Resolved]
  - Headache [Recovered/Resolved]
  - Vision blurred [Recovered/Resolved]
  - Malaise [Recovered/Resolved]
  - Cyanosis [Recovered/Resolved]
  - Presyncope [Recovered/Resolved]
  - Incorrect route of product administration [Recovered/Resolved]
  - Nausea [Recovered/Resolved]
  - Feeling abnormal [Recovered/Resolved]
  - Chills [Recovered/Resolved]
  - Injection site haemorrhage [Recovered/Resolved]

NARRATIVE: CASE EVENT DATE: 20210315
